FAERS Safety Report 25246531 (Version 1)
Quarter: 2025Q2

REPORT INFORMATION
  Report Type: Spontaneous
  Country: US (occurrence: US)
  Receive Date: 20250428
  Receipt Date: 20250428
  Transmission Date: 20250716
  Serious: No
  Sender: APOTEX
  Company Number: US-APOTEX-2025AP004959

PATIENT
  Age: 22 Year
  Sex: Male

DRUGS (16)
  1. DASATINIB [Suspect]
     Active Substance: DASATINIB
     Indication: Cancer pain
     Route: 065
  2. RUXOLITINIB [Suspect]
     Active Substance: RUXOLITINIB
     Indication: Cancer pain
     Route: 065
  3. MERCAPTOPURINE [Suspect]
     Active Substance: MERCAPTOPURINE
     Indication: Cancer pain
     Route: 065
  4. ARSENIC TRIOXIDE [Suspect]
     Active Substance: ARSENIC TRIOXIDE
     Indication: Cancer pain
     Route: 065
  5. KETAMINE [Concomitant]
     Active Substance: KETAMINE
     Indication: Cancer pain
     Route: 065
  6. FENTANYL [Concomitant]
     Active Substance: FENTANYL
     Indication: Cancer pain
     Route: 065
  7. MORPHINE [Concomitant]
     Active Substance: MORPHINE
     Indication: Cancer pain
     Route: 065
  8. ACETAMINOPHEN [Concomitant]
     Active Substance: ACETAMINOPHEN
     Indication: Cancer pain
     Route: 065
  9. LORAZEPAM [Concomitant]
     Active Substance: LORAZEPAM
     Indication: Cancer pain
     Route: 065
  10. DEXAMETHASONE [Concomitant]
     Active Substance: DEXAMETHASONE
     Indication: Cancer pain
     Route: 065
  11. GABAPENTIN [Concomitant]
     Active Substance: GABAPENTIN
     Indication: Cancer pain
  12. DULOXETINE [Concomitant]
     Active Substance: DULOXETINE
     Indication: Cancer pain
     Route: 065
  13. METHOCARBAMOL [Concomitant]
     Active Substance: METHOCARBAMOL
     Indication: Cancer pain
     Route: 065
  14. OME [Concomitant]
     Indication: Cancer pain
     Dosage: 1000 (UNIT UNSPECIFIED), QD
     Route: 065
  15. OME [Concomitant]
     Dosage: 16,000 (UNIT UNSPECIFIED), QD
     Route: 065
  16. OME [Concomitant]
     Dosage: 2500 (UNIT UNSPECIFIED), QD
     Route: 065

REACTIONS (1)
  - Drug withdrawal syndrome [Unknown]
